FAERS Safety Report 18005278 (Version 1)
Quarter: 2020Q3

REPORT INFORMATION
  Report Type: Spontaneous
  Country: US (occurrence: US)
  Receive Date: 20200709
  Receipt Date: 20200709
  Transmission Date: 20201103
  Serious: Yes (Hospitalization)
  Sender: FDA-Public Use
  Company Number: None

PATIENT
  Sex: Female

DRUGS (2)
  1. SIROLIMUS ORAL SOLIN 1MG/ML APOTEX [Suspect]
     Active Substance: SIROLIMUS
     Indication: GRAFT VERSUS HOST DISEASE
     Route: 048
     Dates: start: 20200509
  2. SIROLIMUS ORAL SOLIN 1MG/ML APOTEX [Suspect]
     Active Substance: SIROLIMUS
     Indication: STEM CELL TRANSPLANT
     Route: 048
     Dates: start: 20200509

REACTIONS (1)
  - COVID-19 [None]
